FAERS Safety Report 25551296 (Version 1)
Quarter: 2025Q3

REPORT INFORMATION
  Report Type: Spontaneous
  Country: CA (occurrence: CA)
  Receive Date: 20250714
  Receipt Date: 20250714
  Transmission Date: 20251021
  Serious: Yes (Other)
  Sender: ORGANON
  Company Number: CA-ORGANON-O2507CAN001191

PATIENT
  Age: 87 Year
  Sex: Female

DRUGS (1)
  1. NASONEX [Suspect]
     Active Substance: MOMETASONE FUROATE
     Indication: Rhinitis
     Dosage: 50 MICROGRAM, BID (1 EVERY .5 DAYS)
     Route: 065

REACTIONS (1)
  - Urinary incontinence [Unknown]
